FAERS Safety Report 10079320 (Version 1)
Quarter: 2014Q2

REPORT INFORMATION
  Report Type: Spontaneous
  Country: US (occurrence: US)
  Receive Date: 20140415
  Receipt Date: 20140415
  Transmission Date: 20141212
  Serious: No
  Sender: FDA-Public Use
  Company Number: US-009507513-1403USA011616

PATIENT
  Age: 40 Year
  Sex: Female

DRUGS (2)
  1. CORICIDIN HBP COUGH AND COLD [Suspect]
     Indication: COUGH
     Dosage: UNK, UNKNOWN
     Route: 048
  2. CORICIDIN HBP COUGH AND COLD [Suspect]
     Indication: NASOPHARYNGITIS

REACTIONS (1)
  - Drug effect decreased [Unknown]
